FAERS Safety Report 19279493 (Version 3)
Quarter: 2021Q2

REPORT INFORMATION
  Report Type: Spontaneous
  Country: ES (occurrence: ES)
  Receive Date: 20210520
  Receipt Date: 20210616
  Transmission Date: 20210717
  Serious: Yes (Other)
  Sender: FDA-Public Use
  Company Number: ES-MYLANLABS-2021M1029200

PATIENT
  Age: 53 Year
  Sex: Female

DRUGS (4)
  1. ZOLPIDEM [Suspect]
     Active Substance: ZOLPIDEM TARTRATE
     Indication: INSOMNIA
     Dosage: 10 MILLIGRAM, QD
     Route: 065
  2. ZOLPIDEM [Suspect]
     Active Substance: ZOLPIDEM TARTRATE
     Dosage: 2 DOSAGE FORM, HS (2 DF, Q.H.S., SHORTLY BEFORE GOING TO BED)
     Route: 065
  3. VENLAFAXINE [Concomitant]
     Active Substance: VENLAFAXINE HYDROCHLORIDE
     Indication: MAJOR DEPRESSION
     Dosage: 150 MILLIGRAM, QD
     Route: 065
  4. ZOLPIDEM [Suspect]
     Active Substance: ZOLPIDEM TARTRATE
     Dosage: 10 MILLIGRAM, HS (10 MG, Q.H.S., SHORTLY BEFORE GOING TO BED)
     Route: 048

REACTIONS (10)
  - Sleep-related eating disorder [Recovered/Resolved]
  - Sleep talking [Recovered/Resolved]
  - Unevaluable event [Unknown]
  - Amnesia [Recovered/Resolved]
  - Weight increased [Unknown]
  - Decreased appetite [Unknown]
  - Abnormal sleep-related event [Recovered/Resolved]
  - Abdominal distension [Unknown]
  - Abnormal behaviour [Recovered/Resolved]
  - Anterograde amnesia [Recovered/Resolved]

NARRATIVE: CASE EVENT DATE: 2010
